FAERS Safety Report 5137940-4 (Version None)
Quarter: 2006Q4

REPORT INFORMATION
  Report Type: 
  Country: None (occurrence: None)
  Receive Date: 20061030
  Receipt Date: 20060215
  Transmission Date: 20070319
  Serious: No
  Sender: FDA-Public Use
  Company Number: US-GLAXOSMITHKLINE-A0593852A

PATIENT
  Age: 55 Year
  Sex: Female

DRUGS (5)
  1. ADVAIR HFA [Suspect]
     Indication: ASTHMA
     Dosage: 1PUFF TWICE PER DAY
     Route: 055
     Dates: start: 20050701
  2. FLOVENT [Suspect]
     Indication: ASTHMA
     Dosage: 2PUFF TWICE PER DAY
     Route: 055
     Dates: start: 20060131
  3. ALBUTEROL [Concomitant]
  4. SEREVENT [Concomitant]
     Route: 055
  5. SPIRIVA [Concomitant]

REACTIONS (2)
  - CHEST DISCOMFORT [None]
  - PHARMACEUTICAL PRODUCT COMPLAINT [None]
